FAERS Safety Report 5145410-2 (Version None)
Quarter: 2006Q4

REPORT INFORMATION
  Report Type: 
  Country: None (occurrence: None)
  Receive Date: 20061107
  Receipt Date: 20060828
  Transmission Date: 20070319
  Serious: Yes (Hospitalization)
  Sender: FDA-Public Use
  Company Number: US-BOEHRINGER INGELHEIM PHARMACEUTICALS, INC.-2006-BP-10056BP

PATIENT
  Sex: Male

DRUGS (16)
  1. SPIRIVA [Suspect]
     Indication: CHRONIC OBSTRUCTIVE PULMONARY DISEASE
     Route: 055
     Dates: start: 20060724
  2. SPIRIVA [Suspect]
     Indication: DYSPNOEA
  3. ALBUTEROL SULFATE [Concomitant]
     Indication: CHRONIC OBSTRUCTIVE PULMONARY DISEASE
  4. GLIPIZIDE [Concomitant]
  5. DILTIAZEM HCL [Concomitant]
  6. MAVIK [Concomitant]
  7. COREG [Concomitant]
  8. WARFARIN SODIUM [Concomitant]
  9. LANOXIN [Concomitant]
  10. FUROSEMIDE [Concomitant]
  11. ZAROXOLYN [Concomitant]
  12. ZOCOR [Concomitant]
  13. LORATADINE [Concomitant]
  14. OMEPRAZOLE [Concomitant]
  15. FLUNISOLIDE [Concomitant]
  16. LUPRON [Concomitant]
     Route: 030

REACTIONS (2)
  - KNEE ARTHROPLASTY [None]
  - PHARMACEUTICAL PRODUCT COMPLAINT [None]
